FAERS Safety Report 13681346 (Version 1)
Quarter: 2017Q2

REPORT INFORMATION
  Report Type: Spontaneous
  Country: US (occurrence: US)
  Receive Date: 20170622
  Receipt Date: 20170622
  Transmission Date: 20170830
  Serious: Yes (Life-Threatening, Hospitalization)
  Sender: FDA-Public Use
  Company Number: None

PATIENT
  Age: 22 Year
  Sex: Female
  Weight: 92.25 kg

DRUGS (5)
  1. ELIQUIS [Concomitant]
     Active Substance: APIXABAN
  2. XULANE [Suspect]
     Active Substance: ETHINYL ESTRADIOL\NORELGESTROMIN
     Indication: CONTRACEPTION
     Dosage: ?          QUANTITY:1 PATCH(ES);OTHER FREQUENCY:3-4 WEEKS;?
     Route: 062
     Dates: start: 20170430, end: 20170521
  3. LEXAPRO [Concomitant]
     Active Substance: ESCITALOPRAM OXALATE
  4. KEPPRA [Concomitant]
     Active Substance: LEVETIRACETAM
  5. VISTARIL [Concomitant]
     Active Substance: HYDROXYZINE PAMOATE

REACTIONS (6)
  - Migraine [None]
  - Seizure [None]
  - Venous thrombosis [None]
  - Amnesia [None]
  - Brain oedema [None]
  - Product quality issue [None]

NARRATIVE: CASE EVENT DATE: 20170528
